FAERS Safety Report 8191049-4 (Version None)
Quarter: 2012Q1

REPORT INFORMATION
  Report Type: 
  Country: None (occurrence: None)
  Receive Date: 20120307
  Receipt Date: 20120227
  Transmission Date: 20120608
  Serious: Yes (Other)
  Sender: FDA-Public Use
  Company Number: FR-ALLERGAN-1202792US

PATIENT
  Age: 82 Year
  Sex: Female

DRUGS (9)
  1. GLUCOPHAGE [Concomitant]
  2. IRBESARTAN [Concomitant]
  3. NOOXEN [Concomitant]
  4. OZURDEX [Suspect]
     Indication: RETINAL VEIN OCCLUSION
     Dosage: 0.7 MG, SINGLE
     Route: 031
     Dates: start: 20120105, end: 20120105
  5. LASIX [Concomitant]
  6. PREVISCAN [Concomitant]
  7. GAVISCON [Concomitant]
  8. HYPERIUM [Concomitant]
  9. KERLONE [Concomitant]

REACTIONS (1)
  - VITREOUS HAEMORRHAGE [None]
